FAERS Safety Report 6828409-7 (Version None)
Quarter: 2010Q3

REPORT INFORMATION
  Report Type: 
  Country: None (occurrence: None)
  Receive Date: 20100709
  Receipt Date: 20070207
  Transmission Date: 20110219
  Serious: No
  Sender: FDA-Public Use
  Company Number: US-PFIZER INC-2007011547

PATIENT
  Age: 55 Year

DRUGS (2)
  1. CHANTIX [Suspect]
     Indication: EX-TOBACCO USER
  2. ALL OTHER THERAPEUTIC PRODUCTS [Concomitant]

REACTIONS (1)
  - SOMNOLENCE [None]
